FAERS Safety Report 20706252 (Version 3)
Quarter: 2022Q2

REPORT INFORMATION
  Report Type: Report from Study
  Country: CA (occurrence: CA)
  Receive Date: 20220413
  Receipt Date: 20220623
  Transmission Date: 20220720
  Serious: Yes (Other)
  Sender: FDA-Public Use
  Company Number: CA-BRISTOL-MYERS SQUIBB COMPANY-2022-018824

PATIENT
  Age: 73 Year
  Sex: Female

DRUGS (1)
  1. ONUREG [Suspect]
     Active Substance: AZACITIDINE
     Indication: Acute myeloid leukaemia
     Dosage: 300
     Route: 065
     Dates: start: 20211126

REACTIONS (5)
  - Malaise [Unknown]
  - Infection [Unknown]
  - Foot fracture [Unknown]
  - Epistaxis [Unknown]
  - Fall [Unknown]

NARRATIVE: CASE EVENT DATE: 20220401
